FAERS Safety Report 6967034-4 (Version None)
Quarter: 2010Q3

REPORT INFORMATION
  Report Type: 
  Country: None (occurrence: None)
  Receive Date: 20100907
  Receipt Date: 20100823
  Transmission Date: 20110219
  Serious: Yes (Hospitalization)
  Sender: FDA-Public Use
  Company Number: US-BAYER-201023553NA

PATIENT
  Age: 28 Year
  Sex: Female
  Weight: 61 kg

DRUGS (6)
  1. YAZ [Suspect]
     Indication: CONTRACEPTION
     Route: 048
     Dates: start: 20070731, end: 20080511
  2. IBUPROFEN [Concomitant]
  3. CIPROFLOXACIN [Concomitant]
  4. HYDROCODONE [Concomitant]
  5. TRAMADOL HCL [Concomitant]
  6. PHENERGAN [Concomitant]

REACTIONS (3)
  - CHEST PAIN [None]
  - DYSPNOEA [None]
  - PULMONARY EMBOLISM [None]
